FAERS Safety Report 6196335-5 (Version None)
Quarter: 2009Q2

REPORT INFORMATION
  Report Type: 
  Country: None (occurrence: None)
  Receive Date: 20090520
  Receipt Date: 20090511
  Transmission Date: 20091009
  Serious: Yes (Other)
  Sender: FDA-Public Use
  Company Number: US-ALEXION-A200900370

PATIENT
  Sex: Male

DRUGS (7)
  1. SOLIRIS [Suspect]
     Indication: PAROXYSMAL NOCTURNAL HAEMOGLOBINURIA
     Dosage: 600 MG, QWK
     Route: 042
     Dates: start: 20080529, end: 20080619
  2. SOLIRIS [Suspect]
     Dosage: 900 MG, Q2WK
     Route: 042
     Dates: start: 20080626
  3. ATENOLOL [Concomitant]
     Dosage: UNK
     Route: 048
  4. PREDNISONE [Concomitant]
     Dosage: UNK
     Route: 048
  5. CRESTOR [Concomitant]
     Dosage: UNK
     Route: 048
  6. COUMADIN [Concomitant]
     Dosage: UNK
     Route: 048
  7. VITAMIN B-12 [Concomitant]
     Dosage: MONTHLY

REACTIONS (1)
  - INGUINAL HERNIA [None]
